FAERS Safety Report 24573782 (Version 1)
Quarter: 2024Q4

REPORT INFORMATION
  Report Type: Spontaneous
  Country: SE (occurrence: SE)
  Receive Date: 20241103
  Receipt Date: 20241103
  Transmission Date: 20250115
  Serious: Yes (Hospitalization)
  Sender: PFIZER
  Company Number: None

PATIENT
  Age: 42 Year
  Sex: Male

DRUGS (5)
  1. LEVETIRACETAM [Suspect]
     Active Substance: LEVETIRACETAM
     Indication: Epilepsy
     Dosage: 4500 MG, SINGLE
     Dates: start: 20241008, end: 20241008
  2. CARBAMAZEPINE [Suspect]
     Active Substance: CARBAMAZEPINE
     Indication: Epilepsy
     Dosage: 600 MG, SINGLE
     Dates: start: 20241008, end: 20241008
  3. CENOBAMATE [Suspect]
     Active Substance: CENOBAMATE
     Indication: Epilepsy
     Dosage: 300 MG, SINGLE
     Dates: start: 20241008, end: 20241008
  4. VALPROIC ACID [Suspect]
     Active Substance: VALPROIC ACID
     Indication: Epilepsy
     Dosage: 900 MG, SINGLE
     Dates: start: 20241008, end: 20241008
  5. RIVAROXABAN [Concomitant]
     Active Substance: RIVAROXABAN
     Dosage: UNK

REACTIONS (3)
  - Fatigue [Unknown]
  - Toxicity to various agents [Unknown]
  - Accidental overdose [Unknown]

NARRATIVE: CASE EVENT DATE: 20240101
